FAERS Safety Report 14291096 (Version 2)
Quarter: 2017Q4

REPORT INFORMATION
  Report Type: Spontaneous
  Country: JP (occurrence: JP)
  Receive Date: 20171215
  Receipt Date: 20171226
  Transmission Date: 20180321
  Serious: No
  Sender: FDA-Public Use
  Company Number: JP-NOVOPROD-577215

PATIENT
  Age: 12 Year
  Sex: Male
  Weight: 41 kg

DRUGS (1)
  1. NORDITROPIN [Suspect]
     Active Substance: SOMATROPIN
     Indication: GROWTH HORMONE DEFICIENCY
     Dosage: 2 MG, QD (0.35MG/KG/WEEK)
     Route: 058
     Dates: start: 201102

REACTIONS (2)
  - Osteochondrosis [Not Recovered/Not Resolved]
  - Fibroma [Not Recovered/Not Resolved]

NARRATIVE: CASE EVENT DATE: 201708
